FAERS Safety Report 6919597-2 (Version None)
Quarter: 2010Q3

REPORT INFORMATION
  Report Type: 
  Country: None (occurrence: None)
  Receive Date: 20100811
  Receipt Date: 20100802
  Transmission Date: 20110219
  Serious: Yes (Death, Hospitalization)
  Sender: FDA-Public Use
  Company Number: GR-MERCK-1008GRC00002

PATIENT
  Age: 58 Year
  Sex: Male

DRUGS (9)
  1. PRIMAXIN [Suspect]
     Indication: ABDOMINAL RIGIDITY
     Route: 042
     Dates: start: 20080101, end: 20080101
  2. VANCOMYCIN [Concomitant]
     Indication: PERITONITIS
     Route: 051
     Dates: start: 20080201, end: 20080101
  3. CEFTAZIDIME [Concomitant]
     Indication: PERITONITIS
     Route: 042
     Dates: start: 20080201, end: 20080101
  4. CIPROFLOXACIN [Concomitant]
     Indication: PERITONITIS
     Route: 042
     Dates: start: 20080101, end: 20080101
  5. METRONIDAZOLE [Concomitant]
     Indication: PERITONITIS
     Route: 042
     Dates: start: 20080101, end: 20080101
  6. AMPHOTERICIN B [Concomitant]
     Indication: PERITONITIS
     Route: 042
     Dates: start: 20080101, end: 20080101
  7. CASPOFUNGIN ACETATE [Suspect]
     Indication: PERITONITIS
     Route: 042
     Dates: start: 20080101, end: 20080101
  8. LINEZOLID [Concomitant]
     Indication: PERITONITIS
     Route: 042
     Dates: start: 20080101, end: 20080101
  9. VORICONAZOLE [Concomitant]
     Indication: PERITONITIS
     Route: 042
     Dates: start: 20080101, end: 20080101

REACTIONS (1)
  - DRUG INEFFECTIVE [None]
